FAERS Safety Report 21161120 (Version 1)
Quarter: 2022Q3

REPORT INFORMATION
  Report Type: Spontaneous
  Country: US (occurrence: None)
  Receive Date: 20220801
  Receipt Date: 20220801
  Transmission Date: 20221027
  Serious: Yes (Death)
  Sender: FDA-Public Use
  Company Number: None

PATIENT
  Age: 84 Year
  Sex: Male
  Weight: 78.75 kg

DRUGS (15)
  1. NOURIANZ [Suspect]
     Active Substance: ISTRADEFYLLINE
     Indication: Parkinson^s disease
     Dosage: FREQUENCY : DAILY;?
     Route: 048
     Dates: start: 20210304, end: 20220727
  2. ASPIRIN [Concomitant]
     Active Substance: ASPIRIN
  3. benicar hct 20/12.5mg [Concomitant]
  4. breo ellipta 100-25mcg [Concomitant]
  5. carbidopa/levodopa 25/100mg [Concomitant]
  6. CRESTOR [Concomitant]
     Active Substance: ROSUVASTATIN CALCIUM
  7. FERROUS SULFATE [Concomitant]
     Active Substance: FERROUS SULFATE
  8. FOLIC ACID [Concomitant]
     Active Substance: FOLIC ACID
  9. MEMANTINE [Concomitant]
     Active Substance: MEMANTINE
  10. namzaric 14/10mg [Concomitant]
  11. neupro 2mg [Concomitant]
  12. PLAVIX [Concomitant]
     Active Substance: CLOPIDOGREL BISULFATE
  13. PREDNISONE [Concomitant]
     Active Substance: PREDNISONE
  14. synthroid 112mcg [Concomitant]
  15. thiamine 100mg [Concomitant]

REACTIONS (1)
  - Death [None]

NARRATIVE: CASE EVENT DATE: 20220727
